FAERS Safety Report 5262852-5 (Version None)
Quarter: 2007Q1

REPORT INFORMATION
  Report Type: 
  Country: None (occurrence: None)
  Receive Date: 20070312
  Receipt Date: 20070309
  Transmission Date: 20070707
  Serious: Yes (Death, Hospitalization)
  Sender: FDA-Public Use
  Company Number: HK-BRISTOL-MYERS SQUIBB COMPANY-13709076

PATIENT
  Age: 71 Year
  Sex: Male
  Weight: 47 kg

DRUGS (15)
  1. CISPLATIN [Suspect]
     Indication: NON-SMALL CELL LUNG CANCER
     Route: 042
     Dates: start: 20070123, end: 20070123
  2. PF-3512676 [Suspect]
     Indication: NON-SMALL CELL LUNG CANCER
     Dosage: DAY 8 AND 15
     Route: 058
     Dates: start: 20070130, end: 20070130
  3. GEMCITABINE [Suspect]
     Indication: NON-SMALL CELL LUNG CANCER
     Dosage: DAY 1 AND 8
     Route: 042
     Dates: start: 20070130, end: 20070130
  4. SODIUM CHLORIDE [Concomitant]
     Route: 042
     Dates: start: 20070123, end: 20070124
  5. POTASSIUM CHLORIDE [Concomitant]
     Route: 042
     Dates: start: 20070123, end: 20070124
  6. MAGNESIUM SULFATE [Concomitant]
     Route: 042
     Dates: start: 20070123, end: 20070124
  7. GRANISETRON [Concomitant]
     Route: 042
     Dates: start: 20070130, end: 20070130
  8. LORAZEPAM [Concomitant]
     Route: 048
     Dates: start: 20070123, end: 20070123
  9. DEXAMETHASONE [Concomitant]
     Route: 042
     Dates: start: 20070130, end: 20070130
  10. DEXAMETHASONE [Concomitant]
     Route: 048
     Dates: start: 20070123, end: 20070123
  11. CALCIUM CARBONATE [Concomitant]
     Route: 048
     Dates: start: 20070123, end: 20070124
  12. FUROSEMIDE [Concomitant]
     Route: 048
     Dates: start: 20070123, end: 20070123
  13. METOCLOPRAMIDE HCL [Concomitant]
     Route: 048
     Dates: start: 20070104
  14. DOLOGESIC [Concomitant]
     Route: 048
     Dates: start: 20070104
  15. CHLORPHENIRAMINE MALEATE [Concomitant]
     Route: 048
     Dates: start: 20070104

REACTIONS (2)
  - CEREBROVASCULAR ACCIDENT [None]
  - DEATH [None]
